FAERS Safety Report 5076700-X (Version None)
Quarter: 2006Q3

REPORT INFORMATION
  Report Type: 
  Country: None (occurrence: None)
  Receive Date: 20060725
  Receipt Date: 20060521
  Transmission Date: 20061208
  Serious: No
  Sender: FDA-Public Use
  Company Number: 200613928BWH

PATIENT
  Age: 70 Year
  Sex: Male
  Weight: 74.8435 kg

DRUGS (3)
  1. NEXAVAR [Suspect]
     Indication: RENAL CELL CARCINOMA STAGE UNSPECIFIED
     Dosage: 400 MG, BID, ORAL
     Route: 048
     Dates: start: 20051125
  2. PHENOBARBITAL TAB [Concomitant]
  3. DILANTIN [Concomitant]

REACTIONS (3)
  - DIARRHOEA [None]
  - RASH [None]
  - WEIGHT DECREASED [None]
